FAERS Safety Report 8870101 (Version 1)
Quarter: 2012Q4

REPORT INFORMATION
  Report Type: 
  Country: US (occurrence: None)
  Receive Date: 20121025
  Receipt Date: 20121025
  Transmission Date: 20130627
  Serious: Yes (Hospitalization)
  Sender: FDA-Public Use
  Company Number: None

PATIENT
  Sex: Male
  Weight: 78.47 kg

DRUGS (5)
  1. IRINOTECAN [Suspect]
     Dates: start: 20120917
  2. IRINOTECAN [Suspect]
     Dates: start: 20121001
  3. OXALIPLATIN [Suspect]
  4. BEVACIZUMAB [Suspect]
     Dates: start: 20120917
  5. BEVACIZUMAB [Suspect]
     Dates: start: 20121001

REACTIONS (8)
  - Chills [None]
  - Tremor [None]
  - Fatigue [None]
  - Asthenia [None]
  - Dehydration [None]
  - Electrolyte imbalance [None]
  - Hypotension [None]
  - Pyrexia [None]
